FAERS Safety Report 7352051-5 (Version None)
Quarter: 2011Q1

REPORT INFORMATION
  Report Type: 
  Country: None (occurrence: None)
  Receive Date: 20110315
  Receipt Date: 20110303
  Transmission Date: 20110831
  Serious: Yes (Other)
  Sender: FDA-Public Use
  Company Number: US-JNJFOC-20110302280

PATIENT
  Sex: Female
  Weight: 86.18 kg

DRUGS (7)
  1. METHOTREXATE [Concomitant]
  2. PRILOSEC [Concomitant]
  3. LIALDA [Concomitant]
  4. HUMIRA [Concomitant]
  5. REMICADE [Suspect]
     Indication: CROHN'S DISEASE
     Route: 042
  6. PREDNISONE [Concomitant]
  7. REMICADE [Suspect]
     Indication: PSORIATIC ARTHROPATHY
     Route: 042

REACTIONS (2)
  - HEPATIC LESION [None]
  - HODGKIN'S DISEASE [None]
